FAERS Safety Report 4728205-0 (Version None)
Quarter: 2005Q3

REPORT INFORMATION
  Report Type: 
  Country: None (occurrence: None)
  Receive Date: 20050727
  Receipt Date: 20050720
  Transmission Date: 20060218
  Serious: Yes (Hospitalization, Other)
  Sender: FDA-Public Use
  Company Number: 2005089875

PATIENT
  Age: 74 Year
  Sex: Female
  Weight: 53 kg

DRUGS (5)
  1. LIPITOR [Suspect]
     Indication: HYPERLIPIDAEMIA
     Dosage: 10 MG (10 MG, 1 IN 1 D), ORAL
     Route: 048
     Dates: end: 20050530
  2. ALDACTONE [Suspect]
     Indication: ILL-DEFINED DISORDER
     Dosage: 25 MG (25 MG, 1 IN 1 D), ORAL
     Route: 048
     Dates: end: 20050530
  3. DETANTOL R              (BUNAZOSIN HYDROCHLORIDE) [Concomitant]
  4. ACTOS [Concomitant]
  5. LORAMET                 (LORMETAZEPAM) [Concomitant]

REACTIONS (5)
  - DEHYDRATION [None]
  - PNEUMONIA [None]
  - PYELONEPHRITIS [None]
  - RENAL IMPAIRMENT [None]
  - RHABDOMYOLYSIS [None]
